FAERS Safety Report 8488936-6 (Version None)
Quarter: 2012Q3

REPORT INFORMATION
  Report Type: 
  Country: None (occurrence: None)
  Receive Date: 20120705
  Receipt Date: 20120622
  Transmission Date: 20120928
  Serious: Yes (Hospitalization)
  Sender: FDA-Public Use
  Company Number: FR-ROCHE-798949

PATIENT
  Sex: Male
  Weight: 27 kg

DRUGS (9)
  1. VISMODEGIB [Suspect]
     Indication: BASAL CELL CARCINOMA
     Dosage: LAST DOSE PRIOR TO SAE WAS 16 AUG 2011. TEMPORARILY INTERRUPTEDDOSAGE FORM UNKNOWN
     Route: 048
     Dates: start: 20110705, end: 20110802
  2. VITAMIN D [Concomitant]
     Indication: VITAMIN D DEFICIENCY
     Dates: start: 20110728
  3. VISMODEGIB [Suspect]
     Dosage: PERMANENTLY DISCONTINUED
     Route: 048
     Dates: start: 20110808, end: 20110816
  4. LEVOTHYROXINE SODIUM [Concomitant]
     Indication: HYPOTHYROIDISM
  5. HYDROCORTISONE [Concomitant]
     Indication: INFLAMMATION
  6. FLUOXETINE [Concomitant]
     Indication: DEPRESSION
  7. TEGRETOL [Concomitant]
     Indication: EPILEPSY
  8. ATORVASTATIN [Concomitant]
     Indication: HYPOCHOLESTEROLAEMIA
  9. DESMOPRESSIN ACETATE [Concomitant]
     Indication: ENURESIS

REACTIONS (1)
  - LOCALISED INFECTION [None]
